FAERS Safety Report 9483880 (Version 2)
Quarter: 2013Q4

REPORT INFORMATION
  Report Type: Spontaneous
  Country: JP (occurrence: JP)
  Receive Date: 20130828
  Receipt Date: 20131015
  Transmission Date: 20140711
  Serious: Yes (Other)
  Sender: FDA-Public Use
  Company Number: JP-ELI_LILLY_AND_COMPANY-JP201308007562

PATIENT
  Age: 54 Year
  Sex: Female
  Weight: 62 kg

DRUGS (6)
  1. EVISTA [Suspect]
     Dosage: 60 MG, QD
     Route: 048
  2. EVISTA [Suspect]
     Dosage: 60 MG, QD
     Route: 048
     Dates: end: 2013
  3. NOLVADEX /00388701/ [Suspect]
     Dosage: 1 DF, QD
     Route: 048
     Dates: start: 2006, end: 2010
  4. TAKEPRON [Concomitant]
     Dosage: UNK
  5. VOLTAREN                           /00372301/ [Concomitant]
     Dosage: UNK
     Route: 048
  6. MUCOSTA [Concomitant]
     Dosage: UNK

REACTIONS (1)
  - Endometrial hyperplasia [Recovered/Resolved]
